FAERS Safety Report 19351478 (Version 1)
Quarter: 2021Q2

REPORT INFORMATION
  Report Type: Spontaneous
  Country: GB (occurrence: GB)
  Receive Date: 20210531
  Receipt Date: 20210531
  Transmission Date: 20210717
  Serious: Yes (Other)
  Sender: FDA-Public Use
  Company Number: GB-TEVA-2021-GB-1916331

PATIENT
  Age: 84 Year
  Sex: Male
  Weight: 75 kg

DRUGS (17)
  1. AMITRIPTYLINE HYDROCHLORIDE. [Concomitant]
     Active Substance: AMITRIPTYLINE HYDROCHLORIDE
     Dosage: 2 DOSAGE FORMS DAILY; AT NIGHT.
     Dates: start: 20200909
  2. TAMSULOSIN HYDROCHLORIDE. [Concomitant]
     Active Substance: TAMSULOSIN HYDROCHLORIDE
     Dosage: 1 DOSAGE FORMS DAILY;
     Dates: start: 20200909
  3. UREA. [Concomitant]
     Active Substance: UREA
     Indication: DRY SKIN
     Dosage: APPLY DAILY.
     Dates: start: 20200909
  4. NOVOMIX [Concomitant]
     Active Substance: INSULIN ASPART
     Dosage: 42 UNITS AT BREAKFAST TIME AND 18 UNITS AT TEA ...
     Dates: start: 20201211
  5. ATORVASTATIN [Concomitant]
     Active Substance: ATORVASTATIN
     Dosage: 1 DOSAGE FORMS DAILY; AT NIGHT.
     Dates: start: 20200909
  6. CODEINE PHOSPHATE [Concomitant]
     Active Substance: CODEINE PHOSPHATE
     Dosage: 4 DOSAGE FORMS DAILY;
     Dates: start: 20210225, end: 20210331
  7. PARACETAMOL [Concomitant]
     Active Substance: ACETAMINOPHEN
     Dosage: 8 DOSAGE FORMS DAILY;
     Dates: start: 20201016
  8. DOXYCYCLINE. [Suspect]
     Active Substance: DOXYCYCLINE
     Dosage: 100MG
     Route: 065
     Dates: start: 20210519
  9. NOVORAPID [Concomitant]
     Active Substance: INSULIN ASPART
     Dosage: 4?6 UNITS AS REQUIRED. GIVE 4 UNITS IF BLOOD GL...
     Dates: start: 20210111
  10. FINASTERIDE. [Concomitant]
     Active Substance: FINASTERIDE
     Dosage: 1 DOSAGE FORMS DAILY;
     Dates: start: 20200909
  11. QUININE [Concomitant]
     Active Substance: QUININE
     Dosage: 1 DOSAGE FORMS DAILY; AT NIGHT.
     Dates: start: 20200909
  12. TROSPIUM [Concomitant]
     Active Substance: TROSPIUM
     Dosage: 1 DOSAGE FORMS DAILY;
     Dates: start: 20200909, end: 20210225
  13. PREGABALIN. [Concomitant]
     Active Substance: PREGABALIN
     Dosage: 2 DOSAGE FORMS DAILY; AT LUNCHTIME, AT NIGHT.
     Dates: start: 20200909
  14. ASPIRIN. [Concomitant]
     Active Substance: ASPIRIN
     Dosage: 1 DOSAGE FORMS DAILY;
     Dates: start: 20200909
  15. IMIQUIMOD. [Concomitant]
     Active Substance: IMIQUIMOD
     Dosage: APPLY AT NIGHT ON MONDAY, TUESDAY, WEDNESDAY, T...
     Dates: start: 20200909
  16. TAZOCIN [Concomitant]
     Active Substance: PIPERACILLIN SODIUM\TAZOBACTAM SODIUM
     Dates: start: 20210427
  17. ZEROBASE [Concomitant]
     Active Substance: MINERAL OIL\PARAFFIN
     Indication: DRY SKIN
     Dosage: 4 DOSAGE FORMS DAILY; APPLY.
     Dates: start: 20210302

REACTIONS (4)
  - Rash erythematous [Unknown]
  - Skin reaction [Unknown]
  - Scab [Unknown]
  - Skin ulcer [Unknown]

NARRATIVE: CASE EVENT DATE: 20210519
